FAERS Safety Report 9353983 (Version 1)
Quarter: 2013Q2

REPORT INFORMATION
  Report Type: Spontaneous
  Country: AU (occurrence: AU)
  Receive Date: 20130618
  Receipt Date: 20130618
  Transmission Date: 20140414
  Serious: Yes (Other)
  Sender: FDA-Public Use
  Company Number: AU-NICOBRDEVP-2013-10387

PATIENT
  Age: 41 Year
  Sex: Male

DRUGS (3)
  1. CHLORAMPHENICOL [Suspect]
     Indication: PROSTATITIS
     Dosage: 5 G, DAILY
     Route: 048
  2. DOXYCYCLINE (WATSON LABORATORIES) [Suspect]
     Indication: PROSTATITIS
     Dosage: 100 MG, BID
     Route: 048
  3. SULFAMETHOXAZOLE-TRIMETHOPRIM [Suspect]
     Indication: PROSTATITIS
     Dosage: 160/800 MG TWICE DAILY
     Route: 048

REACTIONS (4)
  - Optic neuritis [Recovering/Resolving]
  - Self-medication [Unknown]
  - Incorrect dose administered [Unknown]
  - Incorrect drug administration duration [Unknown]
